FAERS Safety Report 8042511-6 (Version None)
Quarter: 2012Q1

REPORT INFORMATION
  Report Type: 
  Country: None (occurrence: None)
  Receive Date: 20120112
  Receipt Date: 20120106
  Transmission Date: 20120608
  Serious: Yes (Disabling)
  Sender: FDA-Public Use
  Company Number: JP-ALLERGAN-1007168US

PATIENT
  Age: 71 Year
  Sex: Male

DRUGS (9)
  1. LUMIGAN [Suspect]
     Dosage: 1 GTT, QD
     Route: 047
  2. RYSMON TG [Concomitant]
     Dosage: 1 GTT, QD
     Route: 047
     Dates: end: 20100113
  3. ASPARA K [Concomitant]
     Dosage: 300 MG, UNKNOWN
  4. TRAVOPROST AND TIMOLOL [Concomitant]
  5. DIAMOX SRC [Concomitant]
     Dosage: 250 MG, UNKNOWN
  6. AZOPT [Concomitant]
     Dosage: 1 GTT, BID
     Route: 047
     Dates: end: 20100113
  7. LATANOPROST [Concomitant]
     Dosage: UNK
     Route: 047
     Dates: end: 20100113
  8. TIMOPTOL-XE [Concomitant]
     Dosage: UNK
     Dates: start: 20100113
  9. LUMIGAN [Suspect]
     Indication: GLAUCOMA
     Dosage: 1 GTT, QD
     Route: 047
     Dates: start: 20100113, end: 20100224

REACTIONS (4)
  - VISUAL ACUITY REDUCED [None]
  - OCULAR HYPERAEMIA [None]
  - OCULAR HYPERTENSION [None]
  - VITREOUS HAEMORRHAGE [None]
